FAERS Safety Report 11089207 (Version 1)
Quarter: 2015Q2

REPORT INFORMATION
  Report Type: Spontaneous
  Country: ES (occurrence: ES)
  Receive Date: 20150505
  Receipt Date: 20150505
  Transmission Date: 20150821
  Serious: Yes (Other)
  Sender: FDA-Public Use
  Company Number: ES-ROCHE-1571321

PATIENT
  Age: 52 Year
  Sex: Female
  Weight: 71 kg

DRUGS (2)
  1. LOXIFAN [Concomitant]
     Indication: BREAST CANCER
     Route: 048
     Dates: start: 20150316
  2. HERCEPTIN [Suspect]
     Active Substance: TRASTUZUMAB
     Indication: HER-2 POSITIVE BREAST CANCER
     Route: 058
     Dates: start: 20150406, end: 20150427

REACTIONS (1)
  - Optic disc haemorrhage [Recovering/Resolving]

NARRATIVE: CASE EVENT DATE: 20150428
